FAERS Safety Report 7539099-2 (Version None)
Quarter: 2011Q2

REPORT INFORMATION
  Report Type: 
  Country: None (occurrence: None)
  Receive Date: 20110524
  Receipt Date: 20110407
  Transmission Date: 20111010
  Serious: No
  Sender: FDA-Public Use
  Company Number: 030889

PATIENT
  Sex: Female

DRUGS (5)
  1. IMURAN [Concomitant]
  2. CIMZIA [Suspect]
     Dosage: (400 MG 1X/4 WEEKS SUBCUTANEOUS)
     Route: 058
     Dates: start: 20090323
  3. DIFLUCAN [Concomitant]
  4. CIPRO [Concomitant]
  5. LOPERAMIDE [Concomitant]

REACTIONS (4)
  - DIARRHOEA [None]
  - ABDOMINAL PAIN [None]
  - ALOPECIA [None]
  - FATIGUE [None]
